FAERS Safety Report 8960880 (Version 4)
Quarter: 2013Q2

REPORT INFORMATION
  Report Type: Spontaneous
  Country: US (occurrence: US)
  Receive Date: 20121213
  Receipt Date: 20130403
  Transmission Date: 20140414
  Serious: Yes (Other)
  Sender: FDA-Public Use
  Company Number: US-AMGEN-USASP2012079232

PATIENT
  Age: 69 Year
  Sex: Female
  Weight: 53.97 kg

DRUGS (4)
  1. PROLIA [Suspect]
     Indication: OSTEOPOROSIS POSTMENOPAUSAL
     Dosage: UNK
     Dates: start: 201012
  2. CALCIUM [Concomitant]
  3. VITAMIN D /00107901/ [Concomitant]
  4. FOSAMAX [Concomitant]

REACTIONS (17)
  - Malignant melanoma [Unknown]
  - Cutaneous lupus erythematosus [Unknown]
  - Sjogren^s syndrome [Unknown]
  - Sinusitis [Unknown]
  - Bronchitis [Unknown]
  - Nasopharyngitis [Unknown]
  - Hypotension [Unknown]
  - Heart rate increased [Unknown]
  - Pain [Unknown]
  - Arthropathy [Unknown]
  - Weight decreased [Unknown]
  - Malaise [Unknown]
  - Pyrexia [Recovered/Resolved]
  - Cough [Unknown]
  - Scoliosis [Unknown]
  - Eczema [Unknown]
  - Cellulitis [Not Recovered/Not Resolved]
